FAERS Safety Report 4551010-5 (Version None)
Quarter: 2005Q1

REPORT INFORMATION
  Report Type: 
  Country: None (occurrence: None)
  Receive Date: 20050113
  Receipt Date: 20040611
  Transmission Date: 20050727
  Serious: No
  Sender: FDA-Public Use
  Company Number: US-BRISTOL-MYERS SQUIBB COMPANY-12613899

PATIENT
  Sex: Male

DRUGS (2)
  1. CARDIOLITE [Suspect]
     Indication: CHEST PAIN
     Dosage: REST DOSE
     Dates: start: 20040610
  2. CARDIOLITE [Suspect]
     Indication: EXERCISE TEST
     Dosage: REST DOSE
     Dates: start: 20040610

REACTIONS (1)
  - RASH [None]
